FAERS Safety Report 5722211-5 (Version None)
Quarter: 2008Q2

REPORT INFORMATION
  Report Type: 
  Country: None (occurrence: None)
  Receive Date: 20080425
  Receipt Date: 20080410
  Transmission Date: 20081010
  Serious: Yes (Other)
  Sender: FDA-Public Use
  Company Number: ENTC2008-0116

PATIENT
  Age: 63 Year
  Sex: Female
  Weight: 58.5 kg

DRUGS (7)
  1. STALEVO 100 [Suspect]
     Indication: PARKINSON'S DISEASE
     Dosage: 125/50/200 MG, ORAL
     Route: 048
     Dates: start: 20080327, end: 20080329
  2. KEPPRA [Concomitant]
  3. SYTHROID [Concomitant]
  4. VITAMIN B-12 [Concomitant]
  5. CALCIUM [Concomitant]
  6. VITAMIN B COMPLEX CAP [Concomitant]
  7. LYRICA [Concomitant]

REACTIONS (3)
  - DYSPHAGIA [None]
  - ODYNOPHAGIA [None]
  - SENSATION OF FOREIGN BODY [None]
